FAERS Safety Report 8304850-0 (Version None)
Quarter: 2012Q2

REPORT INFORMATION
  Report Type: 
  Country: None (occurrence: None)
  Receive Date: 20120423
  Receipt Date: 20120412
  Transmission Date: 20120825
  Serious: Yes (Hospitalization)
  Sender: FDA-Public Use
  Company Number: TR-PFIZER INC-2012092572

PATIENT
  Age: 38 Year
  Sex: Female

DRUGS (3)
  1. STREPTOMYCIN [Concomitant]
     Indication: BRUCELLOSIS
  2. TETRACYCLINE [Concomitant]
     Indication: BRUCELLOSIS
  3. RIFAMPICIN [Suspect]
     Indication: BRUCELLOSIS

REACTIONS (3)
  - HYPOCALCAEMIA [None]
  - HYPOKALAEMIA [None]
  - METABOLIC ALKALOSIS [None]
